FAERS Safety Report 9989282 (Version 2)
Quarter: 2014Q2

REPORT INFORMATION
  Report Type: Spontaneous
  Country: US (occurrence: US)
  Receive Date: 20140310
  Receipt Date: 20140425
  Transmission Date: 20141212
  Serious: Yes (Hospitalization)
  Sender: FDA-Public Use
  Company Number: US-JNJFOC-20140301928

PATIENT
  Age: 55 Year
  Sex: Male

DRUGS (4)
  1. XARELTO [Suspect]
     Indication: DEEP VEIN THROMBOSIS
     Route: 048
     Dates: start: 20131007, end: 20131230
  2. SIMVASTATIN [Concomitant]
     Indication: HYPERCHOLESTEROLAEMIA
     Dosage: YEARS
     Route: 065
  3. FEXOFENADINE [Concomitant]
     Indication: MULTIPLE ALLERGIES
     Dosage: YEARS
     Route: 065
  4. CIALIS [Concomitant]
     Indication: ERECTILE DYSFUNCTION
     Dosage: YEARS
     Route: 065

REACTIONS (1)
  - Deep vein thrombosis [Recovered/Resolved]
